FAERS Safety Report 8158026-0 (Version None)
Quarter: 2012Q1

REPORT INFORMATION
  Report Type: 
  Country: None (occurrence: None)
  Receive Date: 20120222
  Receipt Date: 20120214
  Transmission Date: 20120608
  Serious: Yes (Hospitalization)
  Sender: FDA-Public Use
  Company Number: PHHY2012ES012853

PATIENT
  Age: 51 Year
  Sex: Female

DRUGS (6)
  1. SIMVASTATIN [Concomitant]
  2. BISOPROLOL [Interacting]
     Indication: HYPERTENSION
     Dosage: 2.5 MG DAILY
     Route: 048
     Dates: start: 20110720, end: 20110820
  3. VOLTAREN [Suspect]
     Indication: PAIN
     Dosage: 100 MG/12 HOURS
     Route: 054
     Dates: start: 20100801, end: 20110820
  4. ACETAMINOPHEN [Concomitant]
  5. ENALAPRIL MALEATE [Interacting]
     Indication: HYPERTENSION
     Dosage: 30 MG DAILY
     Route: 048
     Dates: start: 20080101, end: 20110820
  6. DEXKETOPROFEN TROMETAMOL [Interacting]
     Indication: PAIN
     Dates: start: 20110720, end: 20110820

REACTIONS (2)
  - DRUG INTERACTION [None]
  - HYPERKALAEMIA [None]
